FAERS Safety Report 7656255-3 (Version None)
Quarter: 2011Q3

REPORT INFORMATION
  Report Type: 
  Country: None (occurrence: None)
  Receive Date: 20110804
  Receipt Date: 20110801
  Transmission Date: 20111222
  Serious: Yes (Death, Life-Threatening, Other)
  Sender: FDA-Public Use
  Company Number: DE-ELI_LILLY_AND_COMPANY-DE201108000633

PATIENT
  Age: 73 Year
  Sex: Male

DRUGS (10)
  1. BYETTA [Suspect]
     Dosage: 10 UG, UNK
     Route: 058
  2. SIMVASTATIN [Concomitant]
  3. HYDROCHLOROTHIAZIDE [Concomitant]
     Dosage: 12.5 DF, UNK
  4. METFORMIN HCL [Concomitant]
  5. BYETTA [Suspect]
     Dosage: UNK, UNKNOWN
     Dates: end: 20101101
  6. BYETTA [Suspect]
     Indication: TYPE 2 DIABETES MELLITUS
     Dosage: 5 UG, UNK
     Route: 058
     Dates: start: 20100801
  7. PROTAPHANE [Concomitant]
  8. LEVOTHYROXINE SODIUM [Concomitant]
  9. NEBIVOLOL HCL [Concomitant]
  10. AMLODIPINE BESYLATE [Concomitant]

REACTIONS (3)
  - DEATH [None]
  - NAUSEA [None]
  - PANCREATIC CARCINOMA [None]
